FAERS Safety Report 25836646 (Version 1)
Quarter: 2025Q3

REPORT INFORMATION
  Report Type: Spontaneous
  Country: US (occurrence: None)
  Receive Date: 20250923
  Receipt Date: 20250923
  Transmission Date: 20251020
  Serious: Yes (Disabling, Other)
  Sender: FDA-CTU
  Company Number: None

PATIENT
  Age: 40 Year
  Sex: Male
  Weight: 108.9 kg

DRUGS (9)
  1. EMTRICITABINE\TENOFOVIR DISOPROXIL FUMARATE [Suspect]
     Active Substance: EMTRICITABINE\TENOFOVIR DISOPROXIL FUMARATE
     Indication: Prophylaxis against HIV infection
     Dates: start: 20140101, end: 20250909
  2. TRUVADA [Suspect]
     Active Substance: EMTRICITABINE\TENOFOVIR DISOPROXIL FUMARATE
  3. PrEP [Concomitant]
  4. TRAMADOL [Concomitant]
     Active Substance: TRAMADOL
  5. CYCLOBENZAPRINE [Concomitant]
     Active Substance: CYCLOBENZAPRINE
  6. PREDNISOLONE [Concomitant]
     Active Substance: PREDNISOLONE
  7. CETIRIZINE [Concomitant]
     Active Substance: CETIRIZINE HYDROCHLORIDE
  8. UNSPECIFIED INGREDIENT [Concomitant]
     Active Substance: UNSPECIFIED INGREDIENT
  9. DOXYCYCLINE [Concomitant]
     Active Substance: DOXYCYCLINE

REACTIONS (12)
  - Pain in extremity [None]
  - Dysstasia [None]
  - Movement disorder [None]
  - Bone marrow oedema [None]
  - Weight bearing difficulty [None]
  - Degenerative bone disease [None]
  - Joint space narrowing [None]
  - Exostosis [None]
  - Joint effusion [None]
  - Osteonecrosis [None]
  - Libido disorder [None]
  - Product substitution issue [None]

NARRATIVE: CASE EVENT DATE: 20250704
